FAERS Safety Report 12617431 (Version 2)
Quarter: 2016Q4

REPORT INFORMATION
  Report Type: Report from Study
  Country: BR (occurrence: BR)
  Receive Date: 20160803
  Receipt Date: 20161007
  Transmission Date: 20170207
  Serious: Yes (Hospitalization, Other)
  Sender: FDA-Public Use
  Company Number: BR-BRISTOL-MYERS SQUIBB COMPANY-BMS-2016-058540

PATIENT
  Age: 62 Year
  Sex: Female
  Weight: 64.7 kg

DRUGS (7)
  1. NIVOLUMAB [Suspect]
     Active Substance: NIVOLUMAB
     Dosage: 196.5 MG, TOTAL
     Route: 065
     Dates: start: 20160525, end: 20160525
  2. NIVOLUMAB [Suspect]
     Active Substance: NIVOLUMAB
     Dosage: 189.9 MG, TOTAL
     Route: 065
     Dates: start: 20160608, end: 20160608
  3. NIVOLUMAB [Suspect]
     Active Substance: NIVOLUMAB
     Dosage: 180.9 MG, TOTAL
     Route: 065
     Dates: start: 20160620, end: 20160620
  4. NIVOLUMAB [Suspect]
     Active Substance: NIVOLUMAB
     Dosage: 180.9 MG, TOTAL
     Route: 065
     Dates: start: 20160706, end: 20160706
  5. NIVOLUMAB [Suspect]
     Active Substance: NIVOLUMAB
     Indication: MALIGNANT MELANOMA
     Dosage: 194 MG, TOTAL
     Route: 065
     Dates: start: 20160502, end: 20160502
  6. LEVOTHYROXINE. [Concomitant]
     Active Substance: LEVOTHYROXINE
     Indication: PRODUCT USED FOR UNKNOWN INDICATION
     Dosage: 75 MG, UNK
     Route: 048
     Dates: start: 20160526
  7. DIPYRONE [Concomitant]
     Active Substance: DIPYRONE
     Indication: PRODUCT USED FOR UNKNOWN INDICATION
     Dosage: 70 OTHER, UNK
     Route: 065
     Dates: start: 20160526

REACTIONS (2)
  - Pain in extremity [Recovered/Resolved]
  - Skin neoplasm excision [Unknown]

NARRATIVE: CASE EVENT DATE: 20160613
